FAERS Safety Report 5895311-7 (Version None)
Quarter: 2008Q3

REPORT INFORMATION
  Report Type: 
  Country: None (occurrence: None)
  Receive Date: 20080714
  Receipt Date: 20080714
  Transmission Date: 20090109
  Serious: No
  Sender: FDA-Public Use
  Company Number: None

PATIENT
  Age: 51 Year
  Sex: Female
  Weight: 61.6892 kg

DRUGS (3)
  1. CREST PRO-HEALTH RINSE PROCTOR + GAMBLE [Suspect]
     Indication: DENTAL PLAQUE
     Dosage: ONE TEASPOON ONCE A DAY
     Dates: start: 20060405, end: 20080410
  2. CREST PRO-HEALTH RINSE PROCTOR + GAMBLE [Suspect]
     Indication: GINGIVITIS
     Dosage: ONE TEASPOON ONCE A DAY
     Dates: start: 20060405, end: 20080410
  3. CREST PRO-HEALTH RINSE PROCTOR + GAMBLE [Suspect]
     Indication: PROPHYLAXIS
     Dosage: ONE TEASPOON ONCE A DAY
     Dates: start: 20060405, end: 20080410

REACTIONS (2)
  - ANXIETY [None]
  - TOOTH DISCOLOURATION [None]
